FAERS Safety Report 20178075 (Version 1)
Quarter: 2021Q4

REPORT INFORMATION
  Report Type: Spontaneous
  Country: US (occurrence: US)
  Receive Date: 20211213
  Receipt Date: 20211213
  Transmission Date: 20220303
  Serious: No
  Sender: FDA-Public Use
  Company Number: US-SANOFI-00886214

PATIENT
  Sex: Female

DRUGS (2)
  1. XYZAL [Suspect]
     Active Substance: LEVOCETIRIZINE DIHYDROCHLORIDE
     Dosage: 4 DF, QD
  2. MOTRIN [Concomitant]
     Active Substance: IBUPROFEN
     Indication: Bladder disorder
     Dosage: 800 MG

REACTIONS (2)
  - Bladder disorder [Unknown]
  - Therapy interrupted [Unknown]
